FAERS Safety Report 4317216-5 (Version None)
Quarter: 2004Q1

REPORT INFORMATION
  Report Type: 
  Country: None (occurrence: None)
  Receive Date: 20040313
  Receipt Date: 20040301
  Transmission Date: 20041129
  Serious: Yes (Other)
  Sender: FDA-Public Use
  Company Number: 2004001696

PATIENT
  Age: 75 Year
  Sex: Male
  Weight: 77.1115 kg

DRUGS (7)
  1. NEURONTIN [Suspect]
     Indication: HYPOAESTHESIA
     Dosage: 1200 MG (TID), ORAL
     Route: 048
  2. NEURONTIN [Suspect]
     Indication: PAIN
     Dosage: 1200 MG (TID), ORAL
     Route: 048
  3. NEURONTIN [Suspect]
     Indication: PARAESTHESIA
     Dosage: 1200 MG (TID), ORAL
     Route: 048
  4. TELMISARTAN (TELMISARTAN) [Concomitant]
  5. ESOMEPRAZOLE (ESOMEPRAZOLE) [Concomitant]
  6. ATORVASTATIN CALCIUM [Concomitant]
  7. ACETYLSALICYLIC ACID SRT [Concomitant]

REACTIONS (6)
  - CATARACT [None]
  - HYPOAESTHESIA [None]
  - PAIN [None]
  - PARAESTHESIA [None]
  - POST PROCEDURAL COMPLICATION [None]
  - SPINAL OPERATION [None]
